FAERS Safety Report 8842374 (Version 1)
Quarter: 2012Q4

REPORT INFORMATION
  Report Type: Report from Study
  Country: BE (occurrence: BE)
  Receive Date: 20121016
  Receipt Date: 20121016
  Transmission Date: 20130627
  Serious: Yes (Hospitalization)
  Sender: FDA-Public Use
  Company Number: BE-ABBOTT-12P-013-0992586-00

PATIENT
  Sex: Male

DRUGS (5)
  1. HUMIRA [Suspect]
     Indication: CROHN^S DISEASE
     Route: 058
     Dates: start: 20080605, end: 20080605
  2. HUMIRA [Suspect]
     Dates: start: 200806, end: 200806
  3. HUMIRA [Suspect]
     Dates: start: 200806, end: 20090108
  4. HUMIRA [Suspect]
     Dates: start: 20110502
  5. HUMIRA [Suspect]
     Dates: start: 20110530

REACTIONS (1)
  - Crohn^s disease [Unknown]
